FAERS Safety Report 6993922-9 (Version None)
Quarter: 2010Q3

REPORT INFORMATION
  Report Type: 
  Country: None (occurrence: None)
  Receive Date: 20100917
  Receipt Date: 20100708
  Transmission Date: 20110219
  Serious: No
  Sender: FDA-Public Use
  Company Number: US-ASTRAZENECA-2010SE29023

PATIENT
  Sex: Female

DRUGS (3)
  1. SEROQUEL [Suspect]
     Indication: BIPOLAR DISORDER
     Route: 048
  2. SEROQUEL [Suspect]
     Indication: ANXIETY
     Route: 048
  3. SEROQUEL [Suspect]
     Indication: DEPRESSION
     Route: 048

REACTIONS (6)
  - ANXIETY [None]
  - BRUXISM [None]
  - DRUG DOSE OMISSION [None]
  - DYSPNOEA [None]
  - INSOMNIA [None]
  - PALPITATIONS [None]
